FAERS Safety Report 9238582 (Version 1)
Quarter: 2013Q2

REPORT INFORMATION
  Report Type: Spontaneous
  Country: US (occurrence: None)
  Receive Date: 20130416
  Receipt Date: 20130416
  Transmission Date: 20140414
  Serious: Yes (Hospitalization)
  Sender: FDA-Public Use
  Company Number: 1665354

PATIENT
  Age: 34 Year
  Sex: Female

DRUGS (2)
  1. (GENTAMICIN SULFATE) [Suspect]
     Indication: URINARY TRACT INFECTION
     Dosage: NOT REPORTED, 1 WEEK PARENTERAL
     Route: 051
  2. (POTASSIUM CHLORIDE) [Concomitant]

REACTIONS (6)
  - Endometriosis [None]
  - Hypokalaemia [None]
  - Paraesthesia [None]
  - Hyperkaliuria [None]
  - Metabolic alkalosis [None]
  - Bartter^s syndrome [None]
